FAERS Safety Report 7322651-7 (Version None)
Quarter: 2011Q1

REPORT INFORMATION
  Report Type: 
  Country: None (occurrence: None)
  Receive Date: 20110301
  Receipt Date: 20110215
  Transmission Date: 20110831
  Serious: No
  Sender: FDA-Public Use
  Company Number: US-PFIZER INC-2011040611

PATIENT
  Sex: Male

DRUGS (2)
  1. CELEBREX [Suspect]
     Dosage: UNK
  2. HUMIRA [Suspect]
     Dosage: UNK

REACTIONS (3)
  - ASTHENIA [None]
  - TREMOR [None]
  - BALANCE DISORDER [None]
